FAERS Safety Report 7329754-1 (Version None)
Quarter: 2011Q1

REPORT INFORMATION
  Report Type: 
  Country: None (occurrence: None)
  Receive Date: 20110303
  Receipt Date: 20110228
  Transmission Date: 20110831
  Serious: Yes (Other)
  Sender: FDA-Public Use
  Company Number: BR-PFIZER INC-2011042983

PATIENT
  Age: 65 Year
  Sex: Male

DRUGS (1)
  1. VENLAFAXINE HCL [Suspect]

REACTIONS (1)
  - WEIGHT DECREASED [None]
